FAERS Safety Report 22867215 (Version 4)
Quarter: 2024Q2

REPORT INFORMATION
  Report Type: Report from Study
  Country: BG (occurrence: BG)
  Receive Date: 20230825
  Receipt Date: 20240413
  Transmission Date: 20240716
  Serious: Yes (Other)
  Sender: FDA-Public Use
  Company Number: BG-TAKEDA-2023TUS012023

PATIENT
  Age: 49 Year
  Sex: Male

DRUGS (1)
  1. VEDOLIZUMAB [Suspect]
     Active Substance: VEDOLIZUMAB
     Indication: Colitis ulcerative
     Dosage: 300 MILLIGRAM, Q4WEEKS
     Route: 042
     Dates: start: 20191015

REACTIONS (8)
  - Obstructive nephropathy [Unknown]
  - Hepatic enzyme increased [Unknown]
  - Vitiligo [Unknown]
  - Malaise [Unknown]
  - Ocular hyperaemia [Unknown]
  - Lacrimation increased [Unknown]
  - Nasal congestion [Unknown]
  - Renal pain [Unknown]

NARRATIVE: CASE EVENT DATE: 20191001
